FAERS Safety Report 25824004 (Version 1)
Quarter: 2025Q3

REPORT INFORMATION
  Report Type: Spontaneous
  Country: US (occurrence: None)
  Receive Date: 20250919
  Receipt Date: 20250919
  Transmission Date: 20251021
  Serious: Yes (Hospitalization)
  Sender: FDA-CTU
  Company Number: None

PATIENT
  Sex: Female

DRUGS (3)
  1. AMBRISENTAN [Suspect]
     Active Substance: AMBRISENTAN
     Indication: Pain
     Dosage: FREQUENCY : DAILY;?
     Route: 048
  2. WINREVAIR [Suspect]
     Active Substance: SOTATERCEPT-CSRK
  3. REMODULIN [Concomitant]
     Active Substance: TREPROSTINIL

REACTIONS (14)
  - Pain in jaw [None]
  - Pain in extremity [None]
  - Chest pain [None]
  - Fatigue [None]
  - Syncope [None]
  - Dizziness [None]
  - Peripheral swelling [None]
  - Joint swelling [None]
  - Weight decreased [None]
  - General physical health deterioration [None]
  - Decreased activity [None]
  - Pericardial effusion [None]
  - Fluid retention [None]
  - Therapy cessation [None]
